FAERS Safety Report 7096500-9 (Version None)
Quarter: 2010Q4

REPORT INFORMATION
  Report Type: 
  Country: None (occurrence: None)
  Receive Date: 20101111
  Receipt Date: 20101105
  Transmission Date: 20110411
  Serious: Yes (Hospitalization)
  Sender: FDA-Public Use
  Company Number: A0796067A

PATIENT
  Age: 78 Year
  Sex: Male
  Weight: 95.9 kg

DRUGS (1)
  1. AVANDIA [Suspect]
     Dosage: 4MG PER DAY
     Route: 048
     Dates: start: 20030405, end: 20070630

REACTIONS (1)
  - MYOCARDIAL INFARCTION [None]
